FAERS Safety Report 13727309 (Version 1)
Quarter: 2017Q3

REPORT INFORMATION
  Report Type: Spontaneous
  Country: GB (occurrence: GB)
  Receive Date: 20170706
  Receipt Date: 20170706
  Transmission Date: 20171127
  Serious: Yes (Hospitalization)
  Sender: FDA-Public Use
  Company Number: GB-TEVA-781875ACC

PATIENT
  Age: 53 Year
  Sex: Male
  Weight: 66 kg

DRUGS (14)
  1. ZAPAIN [Concomitant]
     Active Substance: ACETAMINOPHEN\CODEINE PHOSPHATE
     Dosage: 8 DOSAGE FORMS DAILY;
     Dates: start: 20130604
  2. FUROSEMIDE. [Concomitant]
     Active Substance: FUROSEMIDE
     Dosage: 1 DOSAGE FORMS DAILY;
     Dates: start: 20170605
  3. METOCLOPRAMIDE. [Concomitant]
     Active Substance: METOCLOPRAMIDE
     Dosage: 3 DOSAGE FORMS DAILY;
     Dates: start: 20170426, end: 20170505
  4. PANTOPRAZOLE [Concomitant]
     Active Substance: PANTOPRAZOLE
     Dosage: 1 DOSAGE FORMS DAILY;
     Dates: start: 20170315
  5. TRAMADOL. [Concomitant]
     Active Substance: TRAMADOL
     Dosage: TAKE 1-2
     Dates: start: 20150818
  6. VENSIR XL PROLONGED RELEASE [Concomitant]
     Active Substance: VENLAFAXINE HYDROCHLORIDE
     Dosage: 1 DOSAGE FORMS DAILY;
     Dates: start: 20170309
  7. CHLORPHENAMINE [Concomitant]
     Active Substance: CHLORPHENIRAMINE MALEATE
     Dosage: EVERY 4-6 HOURS
     Dates: start: 20170609
  8. FEXOFENADINE [Concomitant]
     Active Substance: FEXOFENADINE\FEXOFENADINE HYDROCHLORIDE
     Dosage: 1 DOSAGE FORMS DAILY;
     Dates: start: 20160623
  9. OMEPRAZOLE. [Concomitant]
     Active Substance: OMEPRAZOLE
     Dosage: 2 DOSAGE FORMS DAILY;
     Dates: start: 20170426, end: 20170426
  10. MIRTAZAPINE. [Concomitant]
     Active Substance: MIRTAZAPINE
     Dosage: 1 DOSAGE FORMS DAILY;
     Dates: start: 20170309
  11. QUETIAPINE. [Suspect]
     Active Substance: QUETIAPINE
     Dates: start: 20170217
  12. BUTEC [Concomitant]
     Active Substance: BUPRENORPHINE
     Dates: start: 20161108
  13. IBUPROFEN. [Concomitant]
     Active Substance: IBUPROFEN
     Dosage: 3 DOSAGE FORMS DAILY;
     Dates: start: 20130118
  14. PROMETHAZINE HYDROCHLORIDE. [Concomitant]
     Active Substance: PROMETHAZINE HYDROCHLORIDE
     Dosage: 2 DOSAGE FORMS DAILY;
     Dates: start: 20170309

REACTIONS (1)
  - Drug-induced liver injury [Recovering/Resolving]

NARRATIVE: CASE EVENT DATE: 20170615
